FAERS Safety Report 14416497 (Version 1)
Quarter: 2018Q1

REPORT INFORMATION
  Report Type: Spontaneous
  Country: CN (occurrence: CN)
  Receive Date: 20180122
  Receipt Date: 20180122
  Transmission Date: 20180509
  Serious: Yes (Other)
  Sender: FDA-Public Use
  Company Number: CN-ABBVIE-18S-035-2229796-00

PATIENT
  Age: 40 Year
  Sex: Male

DRUGS (2)
  1. DEPAKINE CHRONO [Suspect]
     Active Substance: VALPROATE SODIUM
     Indication: EPILEPSY
     Dosage: TABLET, EXTENDED RELEASE
     Route: 048
     Dates: start: 201711
  2. LAMOTRIGINE. [Concomitant]
     Active Substance: LAMOTRIGINE
     Indication: PRODUCT USED FOR UNKNOWN INDICATION
     Route: 065
     Dates: start: 2017

REACTIONS (4)
  - Epilepsy [Recovered/Resolved]
  - Somnambulism [Unknown]
  - Amnesia [Unknown]
  - Disease recurrence [Unknown]

NARRATIVE: CASE EVENT DATE: 20180108
